FAERS Safety Report 22058138 (Version 4)
Quarter: 2023Q2

REPORT INFORMATION
  Report Type: Spontaneous
  Country: CH (occurrence: CH)
  Receive Date: 20230303
  Receipt Date: 20230413
  Transmission Date: 20230722
  Serious: Yes (Death, Life-Threatening, Hospitalization)
  Sender: FDA-Public Use
  Company Number: CH-JNJFOC-20160813272

PATIENT
  Age: 60 Year
  Sex: Male

DRUGS (9)
  1. IMBRUVICA [Suspect]
     Active Substance: IBRUTINIB
     Indication: Mantle cell lymphoma stage IV
     Route: 048
     Dates: start: 20160620, end: 20160806
  2. AMIODARONE [Interacting]
     Active Substance: AMIODARONE
     Indication: Atrial fibrillation
     Route: 048
     Dates: start: 20160806, end: 20160806
  3. NEBIVOLOL [Concomitant]
     Active Substance: NEBIVOLOL
     Indication: Product used for unknown indication
     Route: 048
     Dates: end: 20160806
  4. RAMIPRIL MEPHA [Concomitant]
     Indication: Product used for unknown indication
     Route: 048
     Dates: end: 20160806
  5. INSPRA [Concomitant]
     Active Substance: EPLERENONE
     Indication: Product used for unknown indication
     Route: 048
     Dates: end: 20160806
  6. ATORVASTATIN [Concomitant]
     Active Substance: ATORVASTATIN
     Indication: Product used for unknown indication
     Route: 048
     Dates: end: 20160806
  7. RIVAROXABAN [Interacting]
     Active Substance: RIVAROXABAN
     Indication: Cerebrovascular accident prophylaxis
     Route: 048
     Dates: end: 20160806
  8. XARELTO [Interacting]
     Active Substance: RIVAROXABAN
     Indication: Atrial fibrillation
     Route: 048
     Dates: start: 20160820
  9. CIPRALEX [Suspect]
     Active Substance: ESCITALOPRAM OXALATE
     Indication: Product used for unknown indication
     Route: 048
     Dates: start: 20160806, end: 20160806

REACTIONS (7)
  - Sinus node dysfunction [Fatal]
  - Cardiac arrest [Fatal]
  - Upper gastrointestinal haemorrhage [Recovered/Resolved]
  - Drug level increased [Unknown]
  - Inhibitory drug interaction [Unknown]
  - Potentiating drug interaction [Unknown]
  - Anticoagulation drug level increased [Unknown]

NARRATIVE: CASE EVENT DATE: 20160620
